FAERS Safety Report 6282524-8 (Version None)
Quarter: 2009Q3

REPORT INFORMATION
  Report Type: 
  Country: None (occurrence: None)
  Receive Date: 20090722
  Receipt Date: 20090715
  Transmission Date: 20100115
  Serious: Yes (Other)
  Sender: FDA-Public Use
  Company Number: TUK2009A00119

PATIENT
  Age: 75 Year
  Sex: Female

DRUGS (4)
  1. ACTOS [Suspect]
     Indication: DIABETES MELLITUS
     Dosage: 15 MG, ORAL
     Route: 048
     Dates: start: 20090113
  2. ATORVASTATIN CALCIUM [Concomitant]
  3. GLICLAZIDE (GLICLAZIDE) [Concomitant]
  4. IRBESARTAN [Concomitant]

REACTIONS (2)
  - MACULAR HOLE [None]
  - VISION BLURRED [None]
